FAERS Safety Report 12540565 (Version 3)
Quarter: 2016Q3

REPORT INFORMATION
  Report Type: Report from Study
  Country: JP (occurrence: JP)
  Receive Date: 20160708
  Receipt Date: 20160919
  Transmission Date: 20161109
  Serious: Yes (Other)
  Sender: FDA-Public Use
  Company Number: JP-ROCHE-1787936

PATIENT
  Age: 74 Year
  Sex: Male
  Weight: 69.8 kg

DRUGS (7)
  1. PREDNISOLONE. [Suspect]
     Active Substance: PREDNISOLONE
     Indication: NON-HODGKIN^S LYMPHOMA
     Dosage: DATE OF MOST RECENT DOSE OF PREDNISOLONE PRIOR TO SAE ONSET: 15/JUN/2012 (100 MG).
     Route: 065
     Dates: start: 20120223
  2. RITUXIMAB [Suspect]
     Active Substance: RITUXIMAB
     Dosage: DATE OF MOST RECENT DOSE OF RITUXIMAB PRIOR TO SAE ONSET: 29/MAY/2014 (VOLUME: 633 ML), DOSE CONCENT
     Route: 042
     Dates: start: 20120223
  3. VINCRISTINE [Suspect]
     Active Substance: VINCRISTINE
     Indication: NON-HODGKIN^S LYMPHOMA
     Dosage: DATE OF MOST RECENT DOSE OF VINCRISTINE PRIOR TO SAE ONSET: 12/JUN/2012 (2 MG).
     Route: 042
     Dates: start: 20120224
  4. DOXORUBICIN [Suspect]
     Active Substance: DOXORUBICIN
     Indication: NON-HODGKIN^S LYMPHOMA
     Dosage: DATE OF MOST RECENT DOSE OF DOXORUBICIN PRIOR TO SAE ONSET: 12/JUN/2012 (84 MG).
     Route: 042
     Dates: start: 20120224
  5. CYCLOPHOSPHAMIDE. [Suspect]
     Active Substance: CYCLOPHOSPHAMIDE
     Indication: NON-HODGKIN^S LYMPHOMA
     Dosage: DATE OF MOST RECENT DOSE OF CYCLOPHOSPHAMIDE PRIOR TO SAE ONSET: 12/JUN/2012 (1250 MG)
     Route: 042
     Dates: start: 20120224
  6. IDELALISIB [Concomitant]
     Active Substance: IDELALISIB
     Dosage: 21 DAYS 300 MG PER DAY
     Route: 065
  7. RITUXIMAB [Suspect]
     Active Substance: RITUXIMAB
     Indication: NON-HODGKIN^S LYMPHOMA
     Dosage: MAINTENANCE DOSE
     Route: 042

REACTIONS (1)
  - Cholangiocarcinoma [Not Recovered/Not Resolved]

NARRATIVE: CASE EVENT DATE: 20160614
